FAERS Safety Report 16042038 (Version 1)
Quarter: 2019Q1

REPORT INFORMATION
  Report Type: Spontaneous
  Country: US (occurrence: US)
  Receive Date: 20190206
  Receipt Date: 20190206
  Transmission Date: 20190418
  Serious: Yes (Death)
  Sender: FDA-Public Use
  Company Number: None

PATIENT
  Age: 64 Year
  Sex: Female
  Weight: 73.3 kg

DRUGS (1)
  1. ROSUVASATIN 5MG-10MG [Suspect]
     Active Substance: ROSUVASTATIN
     Indication: TYPE IIA HYPERLIPIDAEMIA
     Dosage: ?          OTHER DOSE:2.5-10;?
     Route: 048
     Dates: start: 20110308, end: 20160111

REACTIONS (1)
  - Dementia [None]

NARRATIVE: CASE EVENT DATE: 20160111
